FAERS Safety Report 6051178-8 (Version None)
Quarter: 2009Q1

REPORT INFORMATION
  Report Type: 
  Country: None (occurrence: None)
  Receive Date: 20090126
  Receipt Date: 20090119
  Transmission Date: 20090719
  Serious: Yes (Hospitalization)
  Sender: FDA-Public Use
  Company Number: FR-AVENTIS-200910279EU

PATIENT
  Age: 83 Year
  Sex: Female

DRUGS (8)
  1. NATRILIX-SR [Suspect]
     Indication: HYPERTENSION
     Route: 048
  2. DIGITOXIN [Suspect]
     Route: 048
  3. ENALAPRIL [Concomitant]
  4. ACTRAPHANE [Concomitant]
  5. PHENPROCOUMON [Concomitant]
  6. SORTIS                             /01326101/ [Concomitant]
     Dates: start: 20080601
  7. AMLODIPINE [Concomitant]
  8. MOXONIDINE [Concomitant]

REACTIONS (2)
  - BRADYCARDIA [None]
  - NAUSEA [None]
